FAERS Safety Report 5331723-8 (Version None)
Quarter: 2007Q2

REPORT INFORMATION
  Report Type: 
  Country: None (occurrence: None)
  Receive Date: 20070517
  Receipt Date: 20061201
  Transmission Date: 20071010
  Serious: Yes (Life-Threatening, Hospitalization)
  Sender: FDA-Public Use
  Company Number: TKT01200600128

PATIENT
  Age: 9 Year
  Sex: Male
  Weight: 31.5 kg

DRUGS (2)
  1. ELAPRASE [Suspect]
     Indication: MUCOPOLYSACCHARIDOSIS II
     Dosage: (16 MG, 1 IN 1  WK), INTRAVENOUS DRIP
     Route: 041
     Dates: start: 20060901
  2. SYNERA [Concomitant]

REACTIONS (6)
  - ANAPHYLACTIC REACTION [None]
  - ANTIBODY TEST POSITIVE [None]
  - CYANOSIS [None]
  - INFUSION RELATED REACTION [None]
  - RESPIRATORY DISTRESS [None]
  - RETCHING [None]
